FAERS Safety Report 8519906-7 (Version None)
Quarter: 2012Q3

REPORT INFORMATION
  Report Type: 
  Country: None (occurrence: None)
  Receive Date: 20120719
  Receipt Date: 20120711
  Transmission Date: 20120928
  Serious: No
  Sender: FDA-Public Use
  Company Number: US-BIOGENIDEC-2012BI024989

PATIENT
  Age: 59 Year
  Sex: Female

DRUGS (3)
  1. AVONEX [Suspect]
     Indication: MULTIPLE SCLEROSIS
     Route: 030
     Dates: start: 20031015, end: 20100601
  2. AVONEX [Suspect]
     Route: 030
     Dates: start: 20051015
  3. AVONEX [Suspect]
     Route: 030
     Dates: start: 20100717

REACTIONS (3)
  - COORDINATION ABNORMAL [None]
  - HEADACHE [None]
  - MOBILITY DECREASED [None]
